FAERS Safety Report 23847629 (Version 2)
Quarter: 2024Q3

REPORT INFORMATION
  Report Type: Spontaneous
  Country: CA (occurrence: CA)
  Receive Date: 20240513
  Receipt Date: 20240912
  Transmission Date: 20241016
  Serious: Yes (Other)
  Sender: PFIZER
  Company Number: CA-PFIZER INC-202400091780

PATIENT
  Age: 61 Year
  Sex: Male

DRUGS (6)
  1. ABRILADA [Suspect]
     Active Substance: ADALIMUMAB-AFZB
     Indication: Crohn^s disease
     Dosage: 1 DF, WK0: 160 MG, WK2: 80MG, THEN 40MG EVERY OTHER WK STARTING WK4
     Route: 058
     Dates: start: 20240305
  2. ABRILADA [Suspect]
     Active Substance: ADALIMUMAB-AFZB
     Dosage: 1 DF, WK0: 160 MG, WK2: 80MG, THEN 40MG EVERY OTHER WK STARTING WK4
     Route: 058
     Dates: start: 20240404
  3. ABRILADA [Suspect]
     Active Substance: ADALIMUMAB-AFZB
     Dosage: 1 DF, WK0: 160 MG, WK2: 80MG, THEN 40MG EVERY OTHER WK STARTING WK4 (40MG AFTER 4 WEEKS AND 2 DAYS)
     Route: 058
     Dates: start: 20240418
  4. ABRILADA [Suspect]
     Active Substance: ADALIMUMAB-AFZB
     Dosage: 40 MG (2 WEEKS AND 5 DAYS)
     Route: 058
     Dates: start: 20240507
  5. ABRILADA [Suspect]
     Active Substance: ADALIMUMAB-AFZB
     Dosage: 1 DF, WK0: 160 MG, WK2: 80MG, THEN 40MG EVERY OTHER WK STARTING WK4
     Route: 058
     Dates: start: 20240826
  6. ABRILADA [Suspect]
     Active Substance: ADALIMUMAB-AFZB
     Dosage: 40 MG, 2 WEEKS (WK0: 160 MG, WK2: 80MG, THEN 40MG EVERY OTHER WK STARTING WK4 )
     Route: 058
     Dates: start: 20240909

REACTIONS (6)
  - Abdominal pain [Recovering/Resolving]
  - Faeces hard [Unknown]
  - Therapeutic product effect incomplete [Unknown]
  - Stomatitis [Not Recovered/Not Resolved]
  - Arthralgia [Not Recovered/Not Resolved]
  - Aphthous ulcer [Unknown]

NARRATIVE: CASE EVENT DATE: 20240101
